FAERS Safety Report 5951433-3 (Version None)
Quarter: 2008Q4

REPORT INFORMATION
  Report Type: 
  Country: None (occurrence: None)
  Receive Date: 20081113
  Receipt Date: 20081106
  Transmission Date: 20090506
  Serious: Yes (Hospitalization)
  Sender: FDA-Public Use
  Company Number: GB-ROCHE-596028

PATIENT
  Sex: Male
  Weight: 122 kg

DRUGS (6)
  1. ORLISTAT [Suspect]
     Indication: OBESITY
     Dosage: DRUG WAS STOPPED FOR 'A MONTH OR SO'
     Route: 048
     Dates: start: 20080718
  2. ORLISTAT [Suspect]
     Route: 048
  3. VERAPAMIL [Concomitant]
     Indication: HYPERTENSION
     Route: 048
  4. ENALAPRIL MALEATE [Concomitant]
     Indication: HYPERTENSION
     Route: 048
  5. METFORMIN HCL [Concomitant]
     Route: 048
  6. PIOGLITAZONE [Concomitant]
     Route: 048

REACTIONS (1)
  - CELLULITIS [None]
